FAERS Safety Report 15657313 (Version 1)
Quarter: 2018Q4

REPORT INFORMATION
  Report Type: Spontaneous
  Country: ES (occurrence: ES)
  Receive Date: 20181126
  Receipt Date: 20181126
  Transmission Date: 20190205
  Serious: Yes (Other)
  Sender: FDA-Public Use
  Company Number: ES-SAKK-2018SA178837AA

PATIENT
  Sex: Female

DRUGS (2)
  1. TOUJEO [Suspect]
     Active Substance: INSULIN GLARGINE
     Indication: DIABETES MELLITUS
     Dosage: 80 UIU, QD
     Route: 058
     Dates: start: 2015
  2. LIXISENATIDE [Suspect]
     Active Substance: LIXISENATIDE
     Indication: DIABETES MELLITUS
     Dosage: 1 UNK, QD
     Route: 058

REACTIONS (2)
  - Colon cancer [Recovered/Resolved]
  - Calcinosis [Unknown]

NARRATIVE: CASE EVENT DATE: 2016
